FAERS Safety Report 19072295 (Version 1)
Quarter: 2021Q1

REPORT INFORMATION
  Report Type: Spontaneous
  Country: US (occurrence: US)
  Receive Date: 20210329
  Receipt Date: 20210329
  Transmission Date: 20210420
  Serious: Yes (Hospitalization)
  Sender: FDA-Public Use
  Company Number: None

PATIENT
  Age: 67 Year
  Sex: Male

DRUGS (2)
  1. NAPROXEN (NAPROXEN 500MG TAB) [Suspect]
     Active Substance: NAPROXEN
     Route: 048
     Dates: start: 20201128, end: 20201204
  2. IBUPROFEN (IBUPROFEN 600MG TAB) [Suspect]
     Active Substance: IBUPROFEN
     Route: 048
     Dates: start: 20201012, end: 20201109

REACTIONS (4)
  - Contraindicated product prescribed [None]
  - Metabolic acidosis [None]
  - Acute kidney injury [None]
  - Contraindicated product administered [None]

NARRATIVE: CASE EVENT DATE: 20210105
